FAERS Safety Report 9003457 (Version 1)
Quarter: 2013Q1

REPORT INFORMATION
  Report Type: Spontaneous
  Country: MY (occurrence: MY)
  Receive Date: 20130108
  Receipt Date: 20130108
  Transmission Date: 20140127
  Serious: Yes (Other)
  Sender: FDA-Public Use
  Company Number: PHHY2012MY122603

PATIENT
  Sex: Female

DRUGS (2)
  1. GLIVEC [Suspect]
     Dosage: UKN, UNK
  2. AMLODIPINE [Suspect]
     Dosage: UKN, UNK

REACTIONS (1)
  - Electrocardiogram QT prolonged [Unknown]
